FAERS Safety Report 9845943 (Version 1)
Quarter: 2014Q1

REPORT INFORMATION
  Report Type: Spontaneous
  Country: TW (occurrence: TW)
  Receive Date: 20140127
  Receipt Date: 20140127
  Transmission Date: 20141002
  Serious: Yes (Life-Threatening, Other)
  Sender: FDA-Public Use
  Company Number: TW-BAYER-2014-006507

PATIENT
  Age: 66 Year
  Sex: Male

DRUGS (11)
  1. CIPROFLOXACIN [Suspect]
     Indication: PERITONITIS
  2. ERTAPENEM [Suspect]
     Indication: DUODENAL ULCER PERFORATION
     Route: 042
  3. ERTAPENEM [Suspect]
     Indication: PERITONITIS
  4. MEROPENEM [Suspect]
     Indication: PERITONITIS
  5. TEICOPLANIN [Suspect]
     Indication: PERITONITIS
  6. TEICOPLANIN [Suspect]
     Indication: PERITONITIS
  7. FLUCONAZOLE [Suspect]
     Indication: PERITONITIS
     Route: 042
  8. PIPERACILLIN W/TAZOBACTAM [Suspect]
     Indication: PERITONITIS
  9. MICAFUNGIN [Suspect]
     Indication: PERITONITIS
  10. TIGECYCLINE [Concomitant]
     Indication: ACINETOBACTER INFECTION
  11. COLISTIN [Concomitant]
     Indication: ACINETOBACTER INFECTION

REACTIONS (6)
  - Drug-induced liver injury [Recovered/Resolved]
  - Acute hepatic failure [Recovered/Resolved]
  - Shock [Recovered/Resolved]
  - Renal failure acute [Recovered/Resolved]
  - Hepatic encephalopathy [Recovered/Resolved]
  - Acinetobacter infection [None]
